FAERS Safety Report 19872129 (Version 1)
Quarter: 2021Q3

REPORT INFORMATION
  Report Type: Spontaneous
  Country: US (occurrence: US)
  Receive Date: 20210923
  Receipt Date: 20210923
  Transmission Date: 20211014
  Serious: No
  Sender: FDA-Public Use
  Company Number: US-BAYER-2021A215165

PATIENT
  Age: 69 Year
  Sex: Female

DRUGS (1)
  1. CLARITIN [Suspect]
     Active Substance: LORATADINE
     Indication: ECZEMA
     Dosage: 1 DF

REACTIONS (1)
  - Drug ineffective for unapproved indication [Not Recovered/Not Resolved]
